FAERS Safety Report 7063507-7 (Version None)
Quarter: 2010Q4

REPORT INFORMATION
  Report Type: 
  Country: None (occurrence: None)
  Receive Date: 20101026
  Receipt Date: 20100218
  Transmission Date: 20110411
  Serious: No
  Sender: FDA-Public Use
  Company Number: US-ABBOTT-10P-163-0628253-00

PATIENT
  Sex: Female

DRUGS (3)
  1. LUPRON DEPOT [Suspect]
     Indication: OVARIAN CYST
     Dates: start: 20091201
  2. TRIAMTERENE [Concomitant]
     Indication: HYPERTENSION
  3. ALLEGRA [Concomitant]
     Indication: SEASONAL ALLERGY

REACTIONS (3)
  - HEADACHE [None]
  - HYPERHIDROSIS [None]
  - VISION BLURRED [None]
